FAERS Safety Report 25023205 (Version 1)
Quarter: 2025Q1

REPORT INFORMATION
  Report Type: Report from Study
  Country: US (occurrence: US)
  Receive Date: 20250228
  Receipt Date: 20250228
  Transmission Date: 20250409
  Serious: Yes (Other)
  Sender: ALEXION PHARMACEUTICALS
  Company Number: US-AstraZeneca-CH-00813655A

PATIENT

DRUGS (1)
  1. OLAPARIB [Suspect]
     Active Substance: OLAPARIB
     Indication: Ovarian cancer

REACTIONS (4)
  - Haemorrhoids [Unknown]
  - Carbohydrate antigen 125 increased [Unknown]
  - Fatigue [Unknown]
  - Peripheral coldness [Unknown]
